FAERS Safety Report 4356086-6 (Version None)
Quarter: 2004Q2

REPORT INFORMATION
  Report Type: 
  Country: None (occurrence: None)
  Receive Date: 20040507
  Receipt Date: 20040507
  Transmission Date: 20050107
  Serious: Yes (Hospitalization)
  Sender: FDA-Public Use
  Company Number: None

PATIENT
  Age: 49 Year
  Sex: Male
  Weight: 76.5 kg

DRUGS (7)
  1. TYLENOL [Suspect]
     Dosage: 1 X ADMINISTRATION (OVER DOSE OF ANOTHERS MEDS)
  2. COLACE 100 MG [Suspect]
  3. GEODON [Suspect]
  4. M.V.I. [Suspect]
  5. RISPERIDONE [Suspect]
  6. SEROQUEL [Suspect]
  7. SERTRALINE HCL [Suspect]

REACTIONS (5)
  - AGGRESSION [None]
  - MEDICATION ERROR [None]
  - SELF-MEDICATION [None]
  - SOMNOLENCE [None]
  - VOMITING [None]
